FAERS Safety Report 12464730 (Version 2)
Quarter: 2016Q2

REPORT INFORMATION
  Report Type: Report from Study
  Country: NL (occurrence: NL)
  Receive Date: 20160614
  Receipt Date: 20160627
  Transmission Date: 20160815
  Serious: Yes (Other)
  Sender: FDA-Public Use
  Company Number: NL-VERTEX PHARMACEUTICALS-2016-003672

PATIENT
  Age: 19 Year
  Sex: Male

DRUGS (13)
  1. TOCOFEROL [Concomitant]
     Active Substance: TOCOPHEROL
     Dosage: 172 MG 1 TIME DAILY 1 TABLET
  2. TOBI [Concomitant]
     Active Substance: TOBRAMYCIN
     Dosage: 112 MG INHALATION 2 TIMES DAILY
  3. AZITROMYCINE [Concomitant]
     Dosage: 500 MG 3 TIME A WEEK 1 TABLET
  4. ORKAMBI [Suspect]
     Active Substance: IVACAFTOR\LUMACAFTOR
     Indication: CYSTIC FIBROSIS
     Dosage: 2 DF (400-250 MG), BID
     Route: 048
     Dates: start: 20160517
  5. TADIM [Concomitant]
     Active Substance: COLISTIMETHATE SODIUM
     Dosage: 2:000,000 E INHALATION 2 TIMES DAILY
  6. CREON [Concomitant]
     Active Substance: PANCRELIPASE AMYLASE\PANCRELIPASE LIPASE\PANCRELIPASE PROTEASE
     Dosage: 150 MG AS NEEDED
  7. FYTOMENADION [Concomitant]
     Dosage: 10 MG TABLETS ONCE A WEEK
  8. CHOLECALCIFEROL [Concomitant]
     Active Substance: CHOLECALCIFEROL
     Dosage: 1 TIME DAILY 1600 IE
  9. FLUTICASONE [Concomitant]
     Active Substance: FLUTICASONE\FLUTICASONE PROPIONATE
     Dosage: NASAL SPRAY 1 TIME DAILY 1 DOSAGE
     Route: 055
  10. DORNASE ALFA [Concomitant]
     Active Substance: DORNASE ALFA
     Dosage: 2,5MG - 2,5 ML 1 TIME
  11. SALBUTAMOL [Concomitant]
     Active Substance: ALBUTEROL
     Dosage: 100 MEG MAX 4 TIMES DAILY
  12. LEVEMIR [Concomitant]
     Active Substance: INSULIN DETEMIR
     Dosage: 1 TIME DAILY 6 EH
  13. RETINOL [Concomitant]
     Active Substance: RETINOL
     Dosage: 1500 IE 1 TIME DALLY 3 TABLETS

REACTIONS (4)
  - Diarrhoea [Recovered/Resolved]
  - Abdominal pain [Recovered/Resolved]
  - Vomiting [Recovered/Resolved]
  - Nausea [Recovered/Resolved]

NARRATIVE: CASE EVENT DATE: 20160519
